FAERS Safety Report 25236613 (Version 1)
Quarter: 2025Q2

REPORT INFORMATION
  Report Type: Report from Study
  Country: JP (occurrence: JP)
  Receive Date: 20250424
  Receipt Date: 20250424
  Transmission Date: 20250717
  Serious: Yes (Other)
  Sender: ROCHE
  Company Number: JP-ROCHE-10000265411

PATIENT

DRUGS (11)
  1. RITUXAN [Suspect]
     Active Substance: RITUXIMAB
     Indication: Diffuse large B-cell lymphoma
     Route: 042
  2. PIRARUBICIN [Suspect]
     Active Substance: PIRARUBICIN
     Indication: Diffuse large B-cell lymphoma
     Route: 065
  3. PIRARUBICIN [Suspect]
     Active Substance: PIRARUBICIN
     Route: 065
  4. PIRARUBICIN [Suspect]
     Active Substance: PIRARUBICIN
     Route: 065
  5. VINCRISTINE SULFATE [Suspect]
     Active Substance: VINCRISTINE SULFATE
     Indication: Diffuse large B-cell lymphoma
     Route: 065
  6. VINCRISTINE SULFATE [Suspect]
     Active Substance: VINCRISTINE SULFATE
     Route: 065
  7. PREDNISOLONE [Suspect]
     Active Substance: PREDNISOLONE
     Indication: Diffuse large B-cell lymphoma
     Route: 065
  8. PREDNISOLONE [Suspect]
     Active Substance: PREDNISOLONE
     Route: 065
  9. CYCLOPHOSPHAMIDE [Suspect]
     Active Substance: CYCLOPHOSPHAMIDE
     Indication: Diffuse large B-cell lymphoma
     Route: 065
  10. CYCLOPHOSPHAMIDE [Suspect]
     Active Substance: CYCLOPHOSPHAMIDE
     Route: 065
  11. CYCLOPHOSPHAMIDE [Suspect]
     Active Substance: CYCLOPHOSPHAMIDE
     Route: 065

REACTIONS (12)
  - Neutropenia [Unknown]
  - Infusion related reaction [Unknown]
  - Anaemia [Unknown]
  - Thrombocytopenia [Unknown]
  - Febrile neutropenia [Unknown]
  - Sepsis [Unknown]
  - Device related infection [Unknown]
  - Pneumonia [Unknown]
  - Pyrexia [Unknown]
  - Diarrhoea [Unknown]
  - Hyperkalaemia [Unknown]
  - Stomatitis [Unknown]
